FAERS Safety Report 19540211 (Version 1)
Quarter: 2021Q3

REPORT INFORMATION
  Report Type: Spontaneous
  Country: US (occurrence: US)
  Receive Date: 20210713
  Receipt Date: 20210713
  Transmission Date: 20211014
  Serious: No
  Sender: FDA-Public Use
  Company Number: US-GLENMARK PHARMACEUTICALS-2020GMK049304

PATIENT

DRUGS (1)
  1. ATOMOXETINE CAPSULES USP [40MG] [Suspect]
     Active Substance: ATOMOXETINE HYDROCHLORIDE
     Indication: ATTENTION DEFICIT HYPERACTIVITY DISORDER
     Dosage: 40 MILLIGRAM, OD
     Route: 048
     Dates: start: 202001, end: 20200816

REACTIONS (4)
  - Urticaria [Recovered/Resolved]
  - Contusion [Recovered/Resolved]
  - Wound [Recovered/Resolved]
  - Skin abrasion [Recovered/Resolved]

NARRATIVE: CASE EVENT DATE: 20200816
